FAERS Safety Report 21000850 (Version 1)
Quarter: 2022Q2

REPORT INFORMATION
  Report Type: Other
  Country: GB (occurrence: GB)
  Receive Date: 20220623
  Receipt Date: 20220623
  Transmission Date: 20220721
  Serious: Yes (Other)
  Sender: FDA-Public Use
  Company Number: GB-CELLTRION INC.-2022GB009604

PATIENT

DRUGS (6)
  1. INFLIXIMAB [Suspect]
     Active Substance: INFLIXIMAB
     Indication: Crohn^s disease
     Dosage: 450MGS EVERY 8/52 (DOSE FORM:120)
     Dates: start: 20210121, end: 20220531
  2. APIXABAN [Concomitant]
     Active Substance: APIXABAN
     Indication: Atrial fibrillation
  3. ATORVASTATIN [Concomitant]
     Active Substance: ATORVASTATIN
     Indication: Lipids increased
  4. METFORMIN [Concomitant]
     Active Substance: METFORMIN HYDROCHLORIDE
     Indication: Diabetes mellitus
  5. INSULIN ASPART [Concomitant]
     Active Substance: INSULIN ASPART
     Indication: Diabetes mellitus
  6. TAMSULOSIN [Concomitant]
     Active Substance: TAMSULOSIN
     Indication: Benign prostatic hyperplasia

REACTIONS (6)
  - Cold sweat [Recovered/Resolved]
  - Dyspnoea [Recovered/Resolved]
  - Rash pruritic [Recovered/Resolved]
  - Chest discomfort [Recovered/Resolved]
  - Headache [Recovered/Resolved]
  - Overdose [Unknown]

NARRATIVE: CASE EVENT DATE: 20220531
